FAERS Safety Report 8178899-5 (Version None)
Quarter: 2012Q1

REPORT INFORMATION
  Report Type: 
  Country: None (occurrence: None)
  Receive Date: 20120302
  Receipt Date: 20120222
  Transmission Date: 20120608
  Serious: Yes (Hospitalization)
  Sender: FDA-Public Use
  Company Number: US-BIOGENIDEC-2012BI006744

PATIENT
  Age: 63 Year
  Sex: Male

DRUGS (3)
  1. AVONEX [Suspect]
     Route: 030
  2. AVONEX [Suspect]
     Indication: MULTIPLE SCLEROSIS
     Route: 030
  3. AVONEX [Suspect]
     Route: 030

REACTIONS (6)
  - PULMONARY THROMBOSIS [None]
  - MEDICATION ERROR [None]
  - THROMBOSIS [None]
  - ARTHROPOD BITE [None]
  - NEUROLOGICAL SYMPTOM [None]
  - GAIT DISTURBANCE [None]
